FAERS Safety Report 25894978 (Version 1)
Quarter: 2025Q4

REPORT INFORMATION
  Report Type: Spontaneous
  Country: US (occurrence: US)
  Receive Date: 20251008
  Receipt Date: 20251008
  Transmission Date: 20260117
  Serious: Yes (Other)
  Sender: MYLAN
  Company Number: US-MYLANLABS-2025M1085415

PATIENT
  Age: 55 Year
  Sex: Male

DRUGS (16)
  1. LYRICA [Suspect]
     Active Substance: PREGABALIN
     Indication: Complex regional pain syndrome
     Dosage: 150 MILLIGRAM, BID
  2. LYRICA [Suspect]
     Active Substance: PREGABALIN
     Indication: Mononeuropathy
     Dosage: 150 MILLIGRAM, BID
     Route: 065
  3. LYRICA [Suspect]
     Active Substance: PREGABALIN
     Dosage: 150 MILLIGRAM, BID
     Route: 065
  4. LYRICA [Suspect]
     Active Substance: PREGABALIN
     Dosage: 150 MILLIGRAM, BID
  5. TRAMADOL [Suspect]
     Active Substance: TRAMADOL
     Indication: Complex regional pain syndrome
     Dosage: 50 MILLIGRAM, Q6H
  6. TRAMADOL [Suspect]
     Active Substance: TRAMADOL
     Indication: Mononeuropathy
     Dosage: 50 MILLIGRAM, Q6H
     Route: 065
  7. TRAMADOL [Suspect]
     Active Substance: TRAMADOL
     Dosage: 50 MILLIGRAM, Q6H
     Route: 065
  8. TRAMADOL [Suspect]
     Active Substance: TRAMADOL
     Dosage: 50 MILLIGRAM, Q6H
  9. LIDOCAINE [Suspect]
     Active Substance: LIDOCAINE
     Indication: Complex regional pain syndrome
     Dosage: UNK UNK, QD
  10. LIDOCAINE [Suspect]
     Active Substance: LIDOCAINE
     Indication: Mononeuropathy
     Dosage: UNK UNK, QD
     Route: 062
  11. LIDOCAINE [Suspect]
     Active Substance: LIDOCAINE
     Dosage: UNK UNK, QD
     Route: 062
  12. LIDOCAINE [Suspect]
     Active Substance: LIDOCAINE
     Dosage: UNK UNK, QD
  13. TYLENOL [Suspect]
     Active Substance: ACETAMINOPHEN
     Indication: Complex regional pain syndrome
     Dosage: UNK
  14. TYLENOL [Suspect]
     Active Substance: ACETAMINOPHEN
     Indication: Mononeuropathy
     Dosage: UNK
     Route: 065
  15. TYLENOL [Suspect]
     Active Substance: ACETAMINOPHEN
     Dosage: UNK
     Route: 065
  16. TYLENOL [Suspect]
     Active Substance: ACETAMINOPHEN
     Dosage: UNK

REACTIONS (1)
  - Drug ineffective [Unknown]
